FAERS Safety Report 16440441 (Version 1)
Quarter: 2019Q2

REPORT INFORMATION
  Report Type: Spontaneous
  Country: US (occurrence: US)
  Receive Date: 20190617
  Receipt Date: 20190617
  Transmission Date: 20190711
  Serious: No
  Sender: FDA-Public Use
  Company Number: US-TAKEDA-2019TUS033616

PATIENT
  Sex: Female

DRUGS (1)
  1. NINLARO [Suspect]
     Active Substance: IXAZOMIB CITRATE
     Indication: PLASMA CELL MYELOMA
     Dosage: 3 MILLIGRAM
     Route: 048
     Dates: start: 20190512

REACTIONS (5)
  - Cough [Unknown]
  - Musculoskeletal chest pain [Unknown]
  - Liver function test abnormal [Unknown]
  - Upper-airway cough syndrome [Unknown]
  - Dyspnoea [Unknown]
